FAERS Safety Report 8176404-0 (Version None)
Quarter: 2012Q1

REPORT INFORMATION
  Report Type: 
  Country: None (occurrence: None)
  Receive Date: 20120301
  Receipt Date: 20120222
  Transmission Date: 20120608
  Serious: Yes (Hospitalization)
  Sender: FDA-Public Use
  Company Number: US-ASTELLAS-2012US002253

PATIENT
  Sex: Male
  Weight: 80 kg

DRUGS (2)
  1. ERLOTINIB HYDROCHLORIDE [Suspect]
     Indication: NON-SMALL CELL LUNG CANCER
     Dosage: 150 MG, UID/QD
     Route: 048
     Dates: start: 20111214, end: 20120202
  2. ERBITUX [Suspect]
     Indication: NON-SMALL CELL LUNG CANCER
     Dosage: 250 MG/M2, WEEKLY
     Route: 042
     Dates: start: 20111214, end: 20120125

REACTIONS (6)
  - LUNG CONSOLIDATION [None]
  - DISEASE PROGRESSION [None]
  - NEOPLASM PROGRESSION [None]
  - PULMONARY EMBOLISM [None]
  - PLEURAL EFFUSION [None]
  - PNEUMOTHORAX [None]
